FAERS Safety Report 5819690-1 (Version None)
Quarter: 2008Q3

REPORT INFORMATION
  Report Type: 
  Country: None (occurrence: None)
  Receive Date: 20080723
  Receipt Date: 20080711
  Transmission Date: 20090109
  Serious: Yes (Other)
  Sender: FDA-Public Use
  Company Number: US-PFIZER INC-2008029837

PATIENT
  Sex: Male
  Weight: 83 kg

DRUGS (2)
  1. CHANTIX [Suspect]
     Indication: SMOKING CESSATION THERAPY
     Dates: start: 20070302, end: 20070501
  2. FLONASE [Concomitant]
     Indication: HYPERSENSITIVITY

REACTIONS (6)
  - ELECTROCARDIOGRAM ABNORMAL [None]
  - EYE ROLLING [None]
  - FEELING HOT [None]
  - MUSCULAR WEAKNESS [None]
  - NAUSEA [None]
  - SYNCOPE [None]
